FAERS Safety Report 4966703-5 (Version None)
Quarter: 2006Q1

REPORT INFORMATION
  Report Type: 
  Country: None (occurrence: None)
  Receive Date: 20060201
  Receipt Date: 20051212
  Transmission Date: 20060701
  Serious: No
  Sender: FDA-Public Use
  Company Number: 2005PV005741

PATIENT
  Age: 41 Year
  Sex: Male
  Weight: 126.1 kg

DRUGS (5)
  1. BYETTA [Suspect]
     Indication: DIABETES MELLITUS NON-INSULIN-DEPENDENT
     Dosage: 5 MCG BID SC
     Route: 058
     Dates: start: 20051207
  2. METFORMIN [Concomitant]
  3. GLUCOTROL [Concomitant]
  4. POTASSIUM [Concomitant]
  5. VITAMIN B COMPLEX CAP [Concomitant]

REACTIONS (9)
  - ABDOMINAL PAIN UPPER [None]
  - ASTHENIA [None]
  - BLOOD GLUCOSE DECREASED [None]
  - DIZZINESS [None]
  - DRUG EFFECT DECREASED [None]
  - FATIGUE [None]
  - NAUSEA [None]
  - SINUSITIS [None]
  - WEIGHT DECREASED [None]
